FAERS Safety Report 12287571 (Version 2)
Quarter: 2016Q3

REPORT INFORMATION
  Report Type: Spontaneous
  Country: US (occurrence: US)
  Receive Date: 20160420
  Receipt Date: 20160729
  Transmission Date: 20161109
  Serious: Yes (Hospitalization, Other)
  Sender: FDA-Public Use
  Company Number: US-CELGENEUS-USA-2016043924

PATIENT
  Age: 67 Year
  Sex: Female
  Weight: 49.85 kg

DRUGS (3)
  1. REVLIMID [Suspect]
     Active Substance: LENALIDOMIDE
     Indication: MYELODYSPLASTIC SYNDROME
     Route: 048
     Dates: start: 20151116
  2. REVLIMID [Suspect]
     Active Substance: LENALIDOMIDE
     Route: 048
     Dates: start: 201601, end: 20160107
  3. REVLIMID [Suspect]
     Active Substance: LENALIDOMIDE
     Route: 048
     Dates: start: 201604, end: 20160706

REACTIONS (3)
  - Platelet count decreased [Recovered/Resolved]
  - Pancytopenia [Not Recovered/Not Resolved]
  - Bone marrow failure [Not Recovered/Not Resolved]

NARRATIVE: CASE EVENT DATE: 20160107
